FAERS Safety Report 9776361 (Version 2)
Quarter: 2014Q1

REPORT INFORMATION
  Report Type: Report from Study
  Country: RU (occurrence: RU)
  Receive Date: 20131220
  Receipt Date: 20140117
  Transmission Date: 20141002
  Serious: Yes (Death)
  Sender: FDA-Public Use
  Company Number: RU-PFIZER INC-2013363531

PATIENT
  Age: 60 Year
  Sex: Male
  Weight: 93.3 kg

DRUGS (6)
  1. TOFACITINIB CITRATE [Suspect]
     Indication: PSORIASIS
     Dosage: 10 MG, 2X/DAY
     Route: 048
     Dates: start: 20121017
  2. ENALAPRIL [Concomitant]
     Indication: HYPERTENSION
     Dosage: 5 MG, 2X/DAY
     Route: 048
     Dates: start: 20090616
  3. INDAPAMIDE [Concomitant]
     Indication: HYPERTENSION
     Dosage: 1.25 MG, 1X/DAY
     Route: 048
     Dates: start: 20090616
  4. METFORMIN [Concomitant]
     Indication: DIABETES MELLITUS
     Dosage: 500 MG, 2X/DAY
     Route: 048
     Dates: start: 20120626
  5. ASPIRIN [Concomitant]
     Indication: AORTIC ARTERIOSCLEROSIS
     Dosage: 125 MG, 1X/DAY
     Route: 048
     Dates: start: 20090616
  6. TIMOLOL [Concomitant]
     Indication: GLAUCOMA
     Dosage: UNK GTT (EYES DROPS), 2X/DAY
     Route: 047
     Dates: start: 200707

REACTIONS (1)
  - Arteriosclerosis coronary artery [Fatal]
